FAERS Safety Report 8152388-6 (Version None)
Quarter: 2012Q1

REPORT INFORMATION
  Report Type: 
  Country: None (occurrence: None)
  Receive Date: 20120221
  Receipt Date: 20120208
  Transmission Date: 20120608
  Serious: Yes (Death, Hospitalization, Disabling)
  Sender: FDA-Public Use
  Company Number: US-CELGENEUS-163-21880-11123837

PATIENT
  Sex: Male
  Weight: 72.64 kg

DRUGS (15)
  1. SPIRIVA [Concomitant]
     Dosage: 2 PUFFS
     Route: 065
  2. POTASSIUM CHLORIDE [Concomitant]
     Route: 065
  3. ANTICOAGULANTS [Concomitant]
     Route: 065
  4. SYMBICORT [Concomitant]
     Dosage: 2 PUFFS
     Route: 065
  5. BUMETANIDE [Concomitant]
     Route: 065
  6. GABAPENTIN [Concomitant]
     Dosage: 300 MILLIGRAM
     Route: 065
  7. DEXAMETHASONE [Concomitant]
     Dosage: 4 MILLIGRAM
     Route: 065
  8. METOPROLOL TARTRATE [Concomitant]
     Dosage: 50 MILLIGRAM
     Route: 065
  9. VELCADE [Concomitant]
     Indication: MULTIPLE MYELOMA
     Dosage: 2 MILLIGRAM
     Route: 041
     Dates: start: 20111020
  10. ALBUTEROL [Concomitant]
     Route: 065
  11. SENOKOT [Concomitant]
     Route: 065
  12. REVLIMID [Suspect]
     Indication: MULTIPLE MYELOMA
     Dosage: 20 MILLIGRAM
     Route: 048
     Dates: start: 20111205, end: 20120111
  13. METAMUCIL-2 [Concomitant]
     Route: 065
  14. VERAPAMIL [Concomitant]
     Dosage: 240 MILLIGRAM
     Route: 065
  15. BUMEX [Concomitant]
     Dosage: 1 MILLIGRAM
     Route: 065

REACTIONS (7)
  - SEPSIS [None]
  - CHRONIC OBSTRUCTIVE PULMONARY DISEASE [None]
  - RENAL FAILURE ACUTE [None]
  - COLITIS [None]
  - PNEUMONIA [None]
  - MULTIPLE MYELOMA [None]
  - ATRIAL FIBRILLATION [None]
